FAERS Safety Report 11860431 (Version 1)
Quarter: 2015Q4

REPORT INFORMATION
  Report Type: Spontaneous
  Country: FR (occurrence: FR)
  Receive Date: 20151222
  Receipt Date: 20151222
  Transmission Date: 20160305
  Serious: Yes (Hospitalization)
  Sender: FDA-Public Use
  Company Number: FR-TEVA-619811ISR

PATIENT
  Age: 65 Year
  Sex: Female

DRUGS (3)
  1. CISPLATINE TEVA 1 MG/ 1 ML [Suspect]
     Active Substance: CISPLATIN
     Dosage: 27.8 MILLIGRAM DAILY;
     Route: 042
     Dates: start: 20151123, end: 20151126
  2. NEBILOX [Concomitant]
     Active Substance: NEBIVOLOL HYDROCHLORIDE
     Dosage: USUAL TREATMENT
  3. KENZEN [Concomitant]
     Active Substance: CANDESARTAN
     Dosage: USUAL TREATMENT

REACTIONS (2)
  - Pulmonary oedema [Recovered/Resolved]
  - Blood pressure systolic increased [None]

NARRATIVE: CASE EVENT DATE: 20151126
